FAERS Safety Report 6183088-X (Version None)
Quarter: 2009Q2

REPORT INFORMATION
  Report Type: 
  Country: None (occurrence: None)
  Receive Date: 20090507
  Receipt Date: 20090429
  Transmission Date: 20091009
  Serious: Yes (Other)
  Sender: FDA-Public Use
  Company Number: CN-ASTRAZENECA-2009AP02964

PATIENT
  Age: 58 Year
  Weight: 63 kg

DRUGS (1)
  1. LIDOCAINE [Suspect]
     Indication: ANAESTHESIA
     Route: 042

REACTIONS (4)
  - APATHY [None]
  - DYSARTHRIA [None]
  - MUSCLE RIGIDITY [None]
  - MUSCLE TWITCHING [None]
